FAERS Safety Report 12884447 (Version 1)
Quarter: 2016Q4

REPORT INFORMATION
  Report Type: Spontaneous
  Country: IL (occurrence: IL)
  Receive Date: 20161026
  Receipt Date: 20161026
  Transmission Date: 20170207
  Serious: Yes (Hospitalization, Other)
  Sender: FDA-Public Use
  Company Number: IL-SHIRE-IL201614923

PATIENT
  Age: 76 Year
  Sex: Male

DRUGS (1)
  1. VPRIV [Suspect]
     Active Substance: VELAGLUCERASE ALFA
     Indication: PRODUCT USED FOR UNKNOWN INDICATION
     Dosage: 2400 IU, 1X/2WKS
     Route: 041
     Dates: start: 2004

REACTIONS (6)
  - Contusion [Unknown]
  - Dizziness [Unknown]
  - Fall [Recovered/Resolved]
  - Pneumonia [Unknown]
  - Asthenia [Unknown]
  - Hypotension [Unknown]

NARRATIVE: CASE EVENT DATE: 20161010
